FAERS Safety Report 4344874-1 (Version None)
Quarter: 2004Q2

REPORT INFORMATION
  Report Type: 
  Country: None (occurrence: None)
  Receive Date: 20040423
  Receipt Date: 20031208
  Transmission Date: 20050107
  Serious: No
  Sender: FDA-Public Use
  Company Number: US-GLAXOSMITHKLINE-A0442339A

PATIENT
  Age: 57 Year
  Sex: Female

DRUGS (6)
  1. ZOFRAN [Suspect]
     Dosage: 4MG PER DAY
     Route: 042
     Dates: start: 20031206
  2. MORPHINE [Suspect]
  3. PRILOSEC [Concomitant]
  4. LOPID [Concomitant]
  5. ZYRTEC [Concomitant]
  6. CELEXA [Concomitant]

REACTIONS (2)
  - FLUSHING [None]
  - RESPIRATORY RATE INCREASED [None]
